FAERS Safety Report 8191419-4 (Version None)
Quarter: 2012Q1

REPORT INFORMATION
  Report Type: 
  Country: None (occurrence: None)
  Receive Date: 20120307
  Receipt Date: 20110328
  Transmission Date: 20120608
  Serious: No
  Sender: FDA-Public Use
  Company Number: US-ASTRAZENECA-2011SE17355

PATIENT
  Age: 48 Year
  Sex: Female
  Weight: 72.6 kg

DRUGS (2)
  1. TRAMADOL HCL [Concomitant]
  2. ZOMIG [Suspect]
     Indication: MIGRAINE
     Route: 048
     Dates: start: 20100101

REACTIONS (2)
  - MIGRAINE [None]
  - DRUG INEFFECTIVE [None]
